FAERS Safety Report 10149571 (Version 1)
Quarter: 2014Q2

REPORT INFORMATION
  Report Type: Spontaneous
  Country: US (occurrence: None)
  Receive Date: 20140501
  Receipt Date: 20140501
  Transmission Date: 20141212
  Serious: Yes (Disabling)
  Sender: FDA-Public Use
  Company Number: None

PATIENT
  Age: 69 Year
  Sex: Female
  Weight: 82.56 kg

DRUGS (1)
  1. LEVOFLOXACIN [Suspect]
     Indication: PERIORBITAL CELLULITIS
     Route: 048
     Dates: start: 20140406, end: 20140412

REACTIONS (3)
  - Tendonitis [None]
  - Tendon rupture [None]
  - Musculoskeletal pain [None]
